FAERS Safety Report 4471087-5 (Version None)
Quarter: 2004Q4

REPORT INFORMATION
  Report Type: 
  Country: None (occurrence: None)
  Receive Date: 20041011
  Receipt Date: 20040930
  Transmission Date: 20050328
  Serious: Yes (Hospitalization)
  Sender: FDA-Public Use
  Company Number: CA-AMGEN-US094295

PATIENT
  Sex: Female

DRUGS (7)
  1. ENBREL [Suspect]
     Indication: RHEUMATOID ARTHRITIS
     Route: 058
     Dates: start: 20040413, end: 20040819
  2. PREDNISONE [Suspect]
     Route: 048
  3. SYNTHROID [Concomitant]
     Route: 048
  4. METOPROLOL [Concomitant]
  5. RANITIDINE [Concomitant]
  6. ACTONEL (PROCTOR + GAMBLE) [Concomitant]
     Route: 048
  7. NITRODUR II [Concomitant]

REACTIONS (3)
  - ABDOMINAL ABSCESS [None]
  - ABSCESS [None]
  - DIVERTICULAR PERFORATION [None]
